FAERS Safety Report 4924677-7 (Version None)
Quarter: 2006Q1

REPORT INFORMATION
  Report Type: 
  Country: None (occurrence: None)
  Receive Date: 20060222
  Receipt Date: 20060210
  Transmission Date: 20060701
  Serious: Yes (Hospitalization, Other)
  Sender: FDA-Public Use
  Company Number: 2006-01-2375

PATIENT
  Age: 39 Year
  Sex: Male

DRUGS (2)
  1. INTRON A [Suspect]
     Indication: HEPATITIS
     Dosage: 10 MIU TIW SUBCUTANEOUS
     Route: 058
     Dates: start: 20050801
  2. RIBAVIRIN [Suspect]
     Indication: HEPATITIS
     Dosage: 2 TABLETS   ORAL
     Route: 048

REACTIONS (1)
  - CONVULSION [None]
